FAERS Safety Report 4648559-3 (Version None)
Quarter: 2005Q2

REPORT INFORMATION
  Report Type: 
  Country: None (occurrence: None)
  Receive Date: 20050429
  Receipt Date: 20050419
  Transmission Date: 20051028
  Serious: Yes (Death, Other)
  Sender: FDA-Public Use
  Company Number: US-JNJFOC-20050404742

PATIENT
  Age: 27 Year
  Sex: Male
  Weight: 84.37 kg

DRUGS (4)
  1. FENTANYL [Suspect]
     Indication: INTENTIONAL MISUSE
     Dates: end: 20031107
  2. HEROIN [Suspect]
     Indication: INTENTIONAL MISUSE
     Route: 065
     Dates: end: 20031107
  3. DIAZEPAM [Suspect]
     Indication: INTENTIONAL MISUSE
     Dates: end: 20031107
  4. ETHANOL [Suspect]
     Indication: INTENTIONAL MISUSE
     Route: 065
     Dates: end: 20031107

REACTIONS (4)
  - ACCIDENTAL DEATH [None]
  - ALCOHOL POISONING [None]
  - DRUG ABUSER [None]
  - DRUG TOXICITY [None]
